FAERS Safety Report 23949952 (Version 2)
Quarter: 2024Q3

REPORT INFORMATION
  Report Type: Report from Study
  Country: CO (occurrence: CO)
  Receive Date: 20240607
  Receipt Date: 20240830
  Transmission Date: 20241016
  Serious: Yes (Hospitalization, Other)
  Sender: TAKEDA
  Company Number: CO-TAKEDA-2024TUS042876

PATIENT
  Age: 20 Year
  Sex: Male
  Weight: 49.7 kg

DRUGS (1)
  1. VEDOLIZUMAB [Suspect]
     Active Substance: VEDOLIZUMAB
     Indication: Crohn^s disease
     Dosage: 300 MILLIGRAM
     Route: 042

REACTIONS (9)
  - Gastrointestinal inflammation [Not Recovered/Not Resolved]
  - Suture rupture [Not Recovered/Not Resolved]
  - Intestinal fistula infection [Not Recovered/Not Resolved]
  - Diarrhoea [Unknown]
  - Discouragement [Unknown]
  - Dysuria [Unknown]
  - General physical health deterioration [Unknown]
  - Malaise [Unknown]
  - Abdominal pain [Unknown]

NARRATIVE: CASE EVENT DATE: 20240418
